FAERS Safety Report 22166082 (Version 3)
Quarter: 2023Q4

REPORT INFORMATION
  Report Type: Spontaneous
  Country: US (occurrence: US)
  Receive Date: 20230403
  Receipt Date: 20231011
  Transmission Date: 20240109
  Serious: Yes (Other)
  Sender: FDA-Public Use
  Company Number: US-GSKCCFUS-Case-01662508_AE-93814

PATIENT

DRUGS (1)
  1. NUCALA [Suspect]
     Active Substance: MEPOLIZUMAB
     Indication: Asthma
     Dosage: 1 DF
     Dates: start: 20220415, end: 20230411

REACTIONS (3)
  - Bone cancer [Unknown]
  - Prostatic specific antigen increased [Not Recovered/Not Resolved]
  - Immune system disorder [Unknown]
